FAERS Safety Report 22530774 (Version 1)
Quarter: 2023Q2

REPORT INFORMATION
  Report Type: Spontaneous
  Country: CR (occurrence: CR)
  Receive Date: 20230607
  Receipt Date: 20230607
  Transmission Date: 20230722
  Serious: Yes (Other)
  Sender: FDA-Public Use
  Company Number: CR-TAKEDA-2023TUS054807

PATIENT
  Age: 83 Year
  Sex: Female

DRUGS (4)
  1. PANTOPRAZOLE MAGNESIUM [Suspect]
     Active Substance: PANTOPRAZOLE MAGNESIUM
     Indication: Hiatus hernia
     Dosage: 40 MILLIGRAM, QD
     Route: 048
  2. PANCREATIN [Concomitant]
     Active Substance: PANCRELIPASE
     Dosage: UNK UNK, QD
  3. PREGABALIN [Concomitant]
     Active Substance: PREGABALIN
     Dosage: UNK UNK, QD
  4. ROSUVASTATIN CALCIUM [Concomitant]
     Active Substance: ROSUVASTATIN CALCIUM
     Dosage: UNK UNK, QD(HALF DOSE)

REACTIONS (3)
  - Neuropathy peripheral [Unknown]
  - Pancreatic enzymes decreased [Unknown]
  - Off label use [Unknown]
